FAERS Safety Report 25121055 (Version 1)
Quarter: 2025Q1

REPORT INFORMATION
  Report Type: Spontaneous
  Country: CN (occurrence: CN)
  Receive Date: 20250326
  Receipt Date: 20250326
  Transmission Date: 20250409
  Serious: Yes (Hospitalization, Other)
  Sender: AMGEN
  Company Number: CN-AMGEN-CHNSP2025056144

PATIENT
  Age: 63 Year
  Sex: Female

DRUGS (5)
  1. EVOLOCUMAB [Suspect]
     Active Substance: EVOLOCUMAB
     Indication: Low density lipoprotein
     Route: 065
  2. CLOPIDOGREL [Concomitant]
     Active Substance: CLOPIDOGREL BISULFATE
     Dosage: 75 MILLIGRAM, QD
     Route: 065
  3. ASPIRIN [Concomitant]
     Active Substance: ASPIRIN
     Dosage: 100 MILLIGRAM, QD
     Route: 065
  4. ROSUVASTATIN [Concomitant]
     Active Substance: ROSUVASTATIN
     Dosage: 10 MILLIGRAM, QD
     Route: 065
  5. SACUBITRIL\VALSARTAN [Concomitant]
     Active Substance: SACUBITRIL\VALSARTAN
     Route: 065

REACTIONS (13)
  - Arterial stenosis [Unknown]
  - Ventricular internal diameter [Unknown]
  - Ejection fraction [Unknown]
  - Acute myocardial infarction [Unknown]
  - Vascular stent stenosis [Unknown]
  - Skin lesion [Unknown]
  - C-reactive protein decreased [Unknown]
  - Red blood cell sedimentation rate decreased [Unknown]
  - Interleukin level decreased [Unknown]
  - Vascular wall hypertrophy [Unknown]
  - Restenosis [Unknown]
  - Device related infection [Unknown]
  - Hypersensitivity [Unknown]
